FAERS Safety Report 9383736 (Version 3)
Quarter: 2013Q3

REPORT INFORMATION
  Report Type: Spontaneous
  Country: NO (occurrence: NO)
  Receive Date: 20130704
  Receipt Date: 20130904
  Transmission Date: 20140515
  Serious: Yes (Disabling, Other)
  Sender: FDA-Public Use
  Company Number: NO-MERCK-1306NOR013601

PATIENT
  Age: 28 Year
  Sex: Female

DRUGS (2)
  1. MK-0000 [Suspect]
  2. MEDROL [Suspect]

REACTIONS (3)
  - Bone infarction [Not Recovered/Not Resolved]
  - Osteonecrosis [Not Recovered/Not Resolved]
  - Tumour excision [Recovered/Resolved]
